FAERS Safety Report 7953854-6 (Version None)
Quarter: 2011Q4

REPORT INFORMATION
  Report Type: 
  Country: None (occurrence: None)
  Receive Date: 20111202
  Receipt Date: 20111121
  Transmission Date: 20120403
  Serious: Yes (Hospitalization, Disabling, Other)
  Sender: FDA-Public Use
  Company Number: US-ELI_LILLY_AND_COMPANY-US201011004599

PATIENT
  Sex: Female
  Weight: 36.735 kg

DRUGS (24)
  1. FORTEO [Suspect]
     Indication: OSTEOPOROSIS
     Dosage: 20 UG, DAILY (1/D)
     Route: 058
     Dates: start: 20101030
  2. FORTEO [Suspect]
     Dosage: 20 UG, QD
     Route: 058
  3. CALCIUM [Concomitant]
     Dosage: 600 MG, UNKNOWN
  4. OMEPRAZOLE [Concomitant]
  5. LEVETIRACETAM [Concomitant]
  6. PRAVACHOL [Concomitant]
  7. TOPROL-XL                          /00376903/ [Concomitant]
     Dosage: 6.25 MG, UNK
  8. FORTEO [Suspect]
     Dosage: 20 UG, DAILY (1/D)
     Route: 058
  9. FERREX [Concomitant]
  10. VITAMIN D [Concomitant]
  11. POTASSIUM CHLORIDE [Concomitant]
  12. PRINIVIL [Concomitant]
  13. CARAFATE [Concomitant]
  14. IMODIUM [Concomitant]
  15. METOPROLOL [Concomitant]
     Dosage: 25 MG, UNKNOWN
  16. FORTEO [Suspect]
     Dosage: 20 UG, DAILY (1/D)
     Route: 058
  17. LISINOPRIL [Concomitant]
  18. PRAVASTATIN SODIUM [Concomitant]
  19. MULTI-VITAMIN [Concomitant]
  20. PLAVIX [Concomitant]
  21. ZOCOR [Concomitant]
  22. FORTEO [Suspect]
     Dosage: 20 UG, QD
     Route: 058
  23. CALCIUM CARBONATE [Concomitant]
     Dosage: UNK
  24. PROTONIX [Concomitant]

REACTIONS (15)
  - CEREBROVASCULAR ACCIDENT [None]
  - FALL [None]
  - CONVULSION [None]
  - LOSS OF CONSCIOUSNESS [None]
  - INJECTION SITE HAEMATOMA [None]
  - MUSCLE SPASMS [None]
  - ALTERED STATE OF CONSCIOUSNESS [None]
  - CONTUSION [None]
  - DRUG INEFFECTIVE [None]
  - APHASIA [None]
  - MALAISE [None]
  - GAIT DISTURBANCE [None]
  - HIP FRACTURE [None]
  - TRANSIENT ISCHAEMIC ATTACK [None]
  - PAIN [None]
